FAERS Safety Report 7186176-4 (Version None)
Quarter: 2010Q4

REPORT INFORMATION
  Report Type: 
  Country: None (occurrence: None)
  Receive Date: 20101222
  Receipt Date: 20101209
  Transmission Date: 20110411
  Serious: Yes (Other)
  Sender: FDA-Public Use
  Company Number: ES-PURDUE-USA-2010-0047236

PATIENT
  Age: 78 Year
  Sex: Female

DRUGS (6)
  1. TRAMADOL (SIMILAR TO NDA 21-745) [Suspect]
     Indication: OSTEOARTHRITIS
     Dosage: 1 DF, UNK
     Dates: start: 20070501, end: 20100401
  2. PARACETAMOL [Concomitant]
     Indication: PRODUCT USED FOR UNKNOWN INDICATION
     Dosage: UNK
     Dates: start: 20010204
  3. LORAZEPAM [Concomitant]
     Indication: PRODUCT USED FOR UNKNOWN INDICATION
  4. CHONDROITIN SULFATE [Concomitant]
     Indication: PRODUCT USED FOR UNKNOWN INDICATION
     Dosage: 400 MG, UNK
  5. MASTICAL D [Concomitant]
     Indication: PRODUCT USED FOR UNKNOWN INDICATION
     Dosage: 2 DF, UNK
  6. SUMIAL [Concomitant]
     Indication: PRODUCT USED FOR UNKNOWN INDICATION
     Dosage: 2 DF, DAILY

REACTIONS (1)
  - URINARY INCONTINENCE [None]
